FAERS Safety Report 10694890 (Version 1)
Quarter: 2015Q1

REPORT INFORMATION
  Report Type: Spontaneous
  Country: US (occurrence: US)
  Receive Date: 20150107
  Receipt Date: 20150107
  Transmission Date: 20150721
  Serious: Yes (Other)
  Sender: FDA-Public Use
  Company Number: US-TEVA-531996USA

PATIENT
  Sex: Female

DRUGS (1)
  1. COPAXONE [Suspect]
     Active Substance: GLATIRAMER ACETATE
     Indication: MULTIPLE SCLEROSIS
     Dosage: UNKNOWN FORM STRENGTH

REACTIONS (6)
  - Multiple sclerosis [Unknown]
  - Pain [Unknown]
  - Gait disturbance [Unknown]
  - Visual impairment [Unknown]
  - Injection site mass [Unknown]
  - Injection site haemorrhage [Unknown]
